FAERS Safety Report 16645751 (Version 1)
Quarter: 2019Q3

REPORT INFORMATION
  Report Type: Spontaneous
  Country: US (occurrence: US)
  Receive Date: 20190730
  Receipt Date: 20190730
  Transmission Date: 20191004
  Serious: Yes (Hospitalization)
  Sender: FDA-Public Use
  Company Number: US-HORIZON-PRO-0157-2019

PATIENT
  Age: 37 Year
  Sex: Male

DRUGS (1)
  1. PROCYSBI [Suspect]
     Active Substance: CYSTEAMINE BITARTRATE
     Indication: END STAGE RENAL DISEASE
     Dosage: 1000 MG BID
     Route: 048

REACTIONS (2)
  - Renal transplant [Unknown]
  - Off label use [Unknown]
